FAERS Safety Report 20420070 (Version 1)
Quarter: 2022Q1

REPORT INFORMATION
  Report Type: Spontaneous
  Country: US (occurrence: None)
  Receive Date: 20220202
  Receipt Date: 20220202
  Transmission Date: 20220423
  Serious: No
  Sender: FDA-Public Use
  Company Number: None

PATIENT
  Age: 37 Year
  Sex: Male

DRUGS (1)
  1. ADDERALL [Suspect]
     Active Substance: AMPHETAMINE ASPARTATE\AMPHETAMINE SULFATE\DEXTROAMPHETAMINE SACCHARATE\DEXTROAMPHETAMINE SULFATE
     Indication: Attention deficit hyperactivity disorder
     Dosage: 30MG DAILY ORALLY?
     Route: 048
     Dates: start: 20210510

REACTIONS (7)
  - Product substitution issue [None]
  - Therapeutic product effect decreased [None]
  - Headache [None]
  - Dizziness [None]
  - Nausea [None]
  - Depressed level of consciousness [None]
  - Sensory disturbance [None]
